FAERS Safety Report 15213544 (Version 8)
Quarter: 2022Q1

REPORT INFORMATION
  Report Type: Report from Study
  Country: US (occurrence: US)
  Receive Date: 20180730
  Receipt Date: 20220203
  Transmission Date: 20220423
  Serious: Yes (Hospitalization, Other)
  Sender: FDA-Public Use
  Company Number: US-SA-2018SA193546

PATIENT
  Age: 49 Year
  Sex: Female

DRUGS (3)
  1. ALEMTUZUMAB [Suspect]
     Active Substance: ALEMTUZUMAB
     Indication: Multiple sclerosis
     Dosage: 12 MG
     Route: 041
     Dates: start: 20180604, end: 20180719
  2. TERIFLUNOMIDE [Suspect]
     Active Substance: TERIFLUNOMIDE
     Indication: Multiple sclerosis
     Dosage: 14 MG, QD
     Route: 048
     Dates: start: 20180816
  3. WARFARIN [Concomitant]
     Active Substance: WARFARIN
     Route: 065

REACTIONS (35)
  - Blood lactic acid increased [Recovered/Resolved]
  - Cardiac disorder [Unknown]
  - Gait disturbance [Unknown]
  - Blood pressure fluctuation [Recovered/Resolved]
  - Sepsis [Unknown]
  - Clostridium difficile infection [Recovered/Resolved]
  - Headache [Recovered/Resolved]
  - Chills [Recovered/Resolved]
  - Cystitis [Unknown]
  - Bundle branch block right [Not Recovered/Not Resolved]
  - Cardiac failure congestive [Recovering/Resolving]
  - Ejection fraction decreased [Recovering/Resolving]
  - Cardiac arrest [Unknown]
  - Chest pain [Recovering/Resolving]
  - Fall [Unknown]
  - Head injury [Recovered/Resolved]
  - Respiration abnormal [Unknown]
  - Septic shock [Recovered/Resolved]
  - Accidental overdose [Unknown]
  - Hospitalisation [Unknown]
  - Balance disorder [Recovered/Resolved]
  - Feeling hot [Recovered/Resolved]
  - Dyspepsia [Not Recovered/Not Resolved]
  - Nausea [Recovered/Resolved]
  - Urinary tract infection [Unknown]
  - Encopresis [Unknown]
  - Condition aggravated [Unknown]
  - Feeling abnormal [Unknown]
  - Renal disorder [Unknown]
  - Dysgraphia [Unknown]
  - Memory impairment [Unknown]
  - Procedural pain [Unknown]
  - Fatigue [Not Recovered/Not Resolved]
  - Unevaluable event [Unknown]
  - Inappropriate schedule of product administration [Unknown]

NARRATIVE: CASE EVENT DATE: 20180604
